FAERS Safety Report 7010794 (Version 2)
Quarter: 2014Q3

REPORT INFORMATION
  Report Type: Spontaneous
  Country: US (occurrence: None)
  Receive Date: 20090526
  Receipt Date: 20140804
  Transmission Date: 20150326
  Serious: Yes (Hospitalization, Other)
  Sender: FDA-Public Use
  Company Number: 2009S1004057

PATIENT
  Age: 63 Year
  Sex: Female
  Weight: 84 kg

DRUGS (8)
  1. LANTUS INSULIN (INSULIN GLARGINE) [Concomitant]
  2. HUMALOG INSULIN (INSULIN LISPRO) [Concomitant]
  3. WELCHOL (COLESEVELAM HYDROCHLORIDE) [Concomitant]
  4. TOPROL (METOPROLOL SUCCINATE) [Concomitant]
  5. PREVACID [Concomitant]
     Active Substance: LANSOPRAZOLE
  6. LISINOPRIL (LISINOPRIL) [Concomitant]
     Active Substance: LISINOPRIL
  7. EZ PREP (EZ PREP) (75 MILLILITRE (S), ORAL SOLUTION) [Suspect]
     Active Substance: SODIUM PHOSPHATE, MONOBASIC, MONOHYDRATE
     Indication: COLONOSCOPY
     Dosage: PO
     Route: 048
     Dates: start: 20080428, end: 20080429
  8. LIPITOR [Concomitant]
     Active Substance: ATORVASTATIN CALCIUM

REACTIONS (4)
  - Dehydration [None]
  - Abdominal discomfort [None]
  - Renal failure [None]
  - Diarrhoea [None]

NARRATIVE: CASE EVENT DATE: 200805
